FAERS Safety Report 5855727-1 (Version None)
Quarter: 2008Q3

REPORT INFORMATION
  Report Type: 
  Country: None (occurrence: None)
  Receive Date: 20080825
  Receipt Date: 20080814
  Transmission Date: 20090109
  Serious: Yes (Hospitalization)
  Sender: FDA-Public Use
  Company Number: CA-TEVA-176036USA

PATIENT
  Sex: Male
  Weight: 94.5 kg

DRUGS (17)
  1. CALCIUM FOLINATE 100 MG BASE/VIAL [Suspect]
     Dates: end: 20071108
  2. PANITUMUMAB [Suspect]
     Indication: COLORECTAL CANCER
     Route: 042
     Dates: start: 20071017
  3. FLUOROURACIL [Suspect]
     Dates: end: 20071108
  4. OXALIPLATIN [Suspect]
     Dates: end: 20071108
  5. OXYBUTYNIN [Concomitant]
  6. DOXYCYCLINE HYCLATE [Concomitant]
  7. LOPERAMIDE HYDROCHLORIDE [Concomitant]
     Dates: start: 20071030, end: 20071104
  8. ACETAMINOPHEN [Concomitant]
     Dates: start: 20071107
  9. METOCLOPRAMIDE [Concomitant]
     Route: 048
  10. MULTI-VITAMINS [Concomitant]
     Dates: start: 20040101
  11. MAGNESIUM SULFATE [Concomitant]
     Dates: start: 20040101
  12. CALCIUM CITRATE [Concomitant]
     Dates: start: 20040101
  13. ERGOCALCIFEROL [Concomitant]
     Dates: start: 20040101
  14. IRON [Concomitant]
  15. COD-LIVER OIL [Concomitant]
  16. VALERIAN [Concomitant]
  17. BISMUTH SUBSALICYLATE [Concomitant]

REACTIONS (2)
  - RENAL FAILURE ACUTE [None]
  - SEPSIS [None]
